FAERS Safety Report 7542224-0 (Version None)
Quarter: 2011Q2

REPORT INFORMATION
  Report Type: 
  Country: None (occurrence: None)
  Receive Date: 20110613
  Receipt Date: 20110607
  Transmission Date: 20111010
  Serious: Yes (Hospitalization)
  Sender: FDA-Public Use
  Company Number: GB-GENZYME-POMP-1001597

PATIENT
  Age: 48 Year
  Sex: Female
  Weight: 59 kg

DRUGS (1)
  1. MYOZYME [Suspect]
     Indication: GLYCOGEN STORAGE DISEASE TYPE II
     Dosage: 1150 MG, Q2W
     Route: 042

REACTIONS (4)
  - TACHYCARDIA [None]
  - DYSPNOEA [None]
  - CHEST DISCOMFORT [None]
  - HEART RATE IRREGULAR [None]
